FAERS Safety Report 4774153-X (Version None)
Quarter: 2005Q3

REPORT INFORMATION
  Report Type: 
  Country: None (occurrence: None)
  Receive Date: 20050914
  Receipt Date: 20050401
  Transmission Date: 20060218
  Serious: Yes (Other)
  Sender: FDA-Public Use
  Company Number: 163-20785-05040184

PATIENT
  Sex: 0

DRUGS (2)
  1. THALIDOMIDE (THALIDOMIDE) (CAPSULES) [Suspect]
     Indication: CHRONIC LYMPHOCYTIC LEUKAEMIA
     Dosage: SEE IMAGE
     Route: 048
     Dates: start: 20010206
  2. THALIDOMIDE (THALIDOMIDE) (CAPSULES) [Suspect]
     Indication: CHRONIC LYMPHOCYTIC LEUKAEMIA
     Dosage: SEE IMAGE
     Route: 048
     Dates: start: 20010309

REACTIONS (9)
  - ANAEMIA [None]
  - DYSPNOEA [None]
  - FATIGUE [None]
  - GASTROINTESTINAL HAEMORRHAGE [None]
  - HAEMOGLOBIN DECREASED [None]
  - INFECTION [None]
  - MELAENA [None]
  - PACKED RED BLOOD CELL TRANSFUSION [None]
  - PLATELET COUNT DECREASED [None]
